FAERS Safety Report 9298527 (Version 1)
Quarter: 2013Q2

REPORT INFORMATION
  Report Type: Spontaneous
  Country: US (occurrence: US)
  Receive Date: 20130520
  Receipt Date: 20130520
  Transmission Date: 20140414
  Serious: Yes (Other)
  Sender: FDA-Public Use
  Company Number: US-ASTRAZENECA-2013SE33135

PATIENT
  Sex: Female

DRUGS (2)
  1. PRILOSEC [Suspect]
     Dosage: AS DIRECTED BY THE PHYSICIAN
     Route: 048
     Dates: start: 1993
  2. PRILOSEC OTC [Suspect]
     Dosage: AS DIRECTED BY THE PHYSICIAN
     Route: 048

REACTIONS (2)
  - Lumbar spinal stenosis [Not Recovered/Not Resolved]
  - Cervical spinal stenosis [Not Recovered/Not Resolved]
